FAERS Safety Report 25712093 (Version 1)
Quarter: 2025Q3

REPORT INFORMATION
  Report Type: Spontaneous
  Country: EU (occurrence: EU)
  Receive Date: 20250821
  Receipt Date: 20250821
  Transmission Date: 20251021
  Serious: Yes (Other)
  Sender: INCYTE
  Company Number: EU-002147023-NVSC2025AT130068

PATIENT
  Age: 19 Year

DRUGS (1)
  1. RUXOLITINIB [Suspect]
     Active Substance: RUXOLITINIB
     Indication: Graft versus host disease
     Route: 065

REACTIONS (2)
  - Cytopenia [Unknown]
  - Liver disorder [Unknown]
